FAERS Safety Report 8180407-X (Version None)
Quarter: 2012Q1

REPORT INFORMATION
  Report Type: 
  Country: None (occurrence: None)
  Receive Date: 20120302
  Receipt Date: 20120216
  Transmission Date: 20120608
  Serious: Yes (Hospitalization)
  Sender: FDA-Public Use
  Company Number: FR-SANOFI-AVENTIS-2012SA010272

PATIENT
  Age: 94 Year
  Sex: Male

DRUGS (19)
  1. ABILIFY [Suspect]
     Route: 048
  2. POLYETHYLENE GLYCOL [Concomitant]
     Dosage: STRENGTH: 10 G; 1 TO 2 DF DAILY IN THE MORNING
     Route: 048
  3. NEXIUM [Concomitant]
     Dosage: DAILY IN THE EVENING; STRENGTH: 20 MG
     Route: 048
  4. MINISINTROM [Concomitant]
     Dosage: STRENGTH: 1 MG; 1 MG TO MG DAILY, AT LUNCH
     Route: 048
  5. NORMACOL [Concomitant]
     Route: 048
  6. TIAPRIDAL [Suspect]
     Dosage: IN THE EVENING
     Route: 048
     Dates: start: 20111125, end: 20111207
  7. IMOVANE [Suspect]
     Route: 048
  8. STABLON [Suspect]
     Dosage: STRENGTH: 12.5 MG
     Route: 048
  9. HYPERIUM [Suspect]
     Dosage: STRENGTH: 1 MG; IN THE EVENING
     Route: 048
  10. VITAMIN D [Concomitant]
     Dosage: STRENGTH: 100,000 IU
     Route: 048
  11. LASIX [Suspect]
     Route: 048
  12. LASIX [Suspect]
     Dosage: STRENGTH: 20 MG; IN THE MORNING
     Route: 048
  13. STABLON [Suspect]
     Route: 048
  14. HYPERIUM [Suspect]
     Route: 048
  15. FOLIC ACID [Concomitant]
     Dosage: STRENGTH: 5 MG; DAILY IN THE MORNING
     Route: 048
  16. NICARDIPINE HYDROCHLORIDE [Suspect]
     Dosage: STRENGTH: 50 MG
     Route: 048
  17. ABILIFY [Suspect]
     Dosage: STRENGTH: 10 MG; IN THE MORNING
     Route: 048
  18. IMOVANE [Suspect]
     Dosage: IN THE EVENING; STRENGTH: 3.75 MG
     Route: 048
  19. NICARDIPINE HYDROCHLORIDE [Suspect]
     Route: 048

REACTIONS (3)
  - DRUG INTERACTION [None]
  - CEPHALHAEMATOMA [None]
  - FALL [None]
